FAERS Safety Report 18131608 (Version 1)
Quarter: 2020Q3

REPORT INFORMATION
  Report Type: Spontaneous
  Country: NL (occurrence: NL)
  Receive Date: 20200810
  Receipt Date: 20200810
  Transmission Date: 20201103
  Serious: Yes (Other)
  Sender: FDA-Public Use
  Company Number: NL-ROCHE-559864

PATIENT
  Age: 80 Year
  Sex: Female

DRUGS (8)
  1. ALENDRONINEZUUR [Concomitant]
     Active Substance: ALENDRONIC ACID
  2. ISOSORBIDEDINITRAAT [Concomitant]
  3. ACETYLSALICYLZUUR [Concomitant]
     Active Substance: ASPIRIN
  4. ATENOLOL. [Concomitant]
     Active Substance: ATENOLOL
  5. AVASTIN [Suspect]
     Active Substance: BEVACIZUMAB
     Indication: MACULAR DEGENERATION
     Route: 050
     Dates: start: 20071115, end: 20071115
  6. SIMVASTATINE [Concomitant]
     Active Substance: SIMVASTATIN
  7. MACULAR SUPPORT (UNK INGREDIENTS) [Concomitant]
  8. LOSARTAN AND HYDROCHLOROTHIAZIDE [Concomitant]
     Active Substance: HYDROCHLOROTHIAZIDE\LOSARTAN POTASSIUM

REACTIONS (1)
  - Uveitis [Recovering/Resolving]

NARRATIVE: CASE EVENT DATE: 20071116
